FAERS Safety Report 12466537 (Version 2)
Quarter: 2016Q4

REPORT INFORMATION
  Report Type: Spontaneous
  Country: US (occurrence: US)
  Receive Date: 20160615
  Receipt Date: 20161014
  Transmission Date: 20170207
  Serious: Yes (Other)
  Sender: FDA-Public Use
  Company Number: US-ASTRAZENECA-2016SE64180

PATIENT
  Age: 23419 Day
  Sex: Female
  Weight: 65.8 kg

DRUGS (5)
  1. ARIMIDEX [Suspect]
     Active Substance: ANASTROZOLE
     Route: 048
     Dates: start: 20110719, end: 20111111
  2. EXEMESTANE. [Suspect]
     Active Substance: EXEMESTANE
     Indication: BREAST CANCER FEMALE
     Route: 065
     Dates: start: 20120423, end: 20160516
  3. PROPRANOLOL HCL [Concomitant]
     Active Substance: PROPRANOLOL HYDROCHLORIDE
     Route: 048
  4. ASPIRIN. [Concomitant]
     Active Substance: ASPIRIN
     Route: 048
  5. VITAMIN D3 [Concomitant]
     Active Substance: CHOLECALCIFEROL
     Route: 048

REACTIONS (18)
  - Cerebrovascular accident [Unknown]
  - Visual impairment [Unknown]
  - Disturbance in attention [Unknown]
  - Osteoporosis [Unknown]
  - Cerebral ischaemia [Unknown]
  - Pain [Recovered/Resolved]
  - Pyrexia [Unknown]
  - Fatigue [Recovered/Resolved]
  - Mood swings [Unknown]
  - Arthralgia [Unknown]
  - Myalgia [Unknown]
  - Hypoacusis [Unknown]
  - Anxiety [Unknown]
  - Nephrolithiasis [Unknown]
  - Muscular weakness [Unknown]
  - Cerebral atrophy [Unknown]
  - Depression [Recovered/Resolved]
  - Diplopia [Unknown]

NARRATIVE: CASE EVENT DATE: 20160511
